FAERS Safety Report 9008259 (Version 2)
Quarter: 2013Q1

REPORT INFORMATION
  Report Type: Spontaneous
  Country: RS (occurrence: None)
  Receive Date: 20121227
  Receipt Date: 20130108
  Transmission Date: 20140127
  Serious: No
  Sender: FDA-Public Use
  Company Number: 1212MNE006487

PATIENT
  Age: 6 Year
  Sex: Male

DRUGS (7)
  1. CEDAX [Suspect]
     Indication: OTITIS MEDIA
     Route: 048
     Dates: start: 20121024, end: 20121025
  2. CEDAX [Suspect]
     Indication: RHINITIS
     Route: 048
     Dates: start: 20121024, end: 20121025
  3. CEDAX [Suspect]
     Indication: ADENOIDITIS
     Route: 048
     Dates: start: 20121024, end: 20121025
  4. CEDAX [Suspect]
     Indication: TRACHEITIS
     Route: 048
     Dates: start: 20121024, end: 20121025
  5. CEDAX [Suspect]
     Indication: TRACHEITIS
     Route: 048
     Dates: start: 20121024, end: 20121025
  6. ANTIMICROBIAL (IUNSPECIFIED) NASAL SPRAY [Concomitant]
  7. RINOFLUIMUCIL (ACETYLCYSTEINE, TUAMINOHEPTANE SULFATE) [Concomitant]

REACTIONS (1)
  - Dermatitis allergic [None]
